FAERS Safety Report 5842590-8 (Version None)
Quarter: 2008Q3

REPORT INFORMATION
  Report Type: 
  Country: None (occurrence: None)
  Receive Date: 20080812
  Receipt Date: 20080806
  Transmission Date: 20090109
  Serious: Yes (Other)
  Sender: FDA-Public Use
  Company Number: ES-MERCK-0808ESP00007

PATIENT
  Age: 64 Year
  Sex: Male

DRUGS (1)
  1. ZETIA [Suspect]
     Indication: HYPERCHOLESTEROLAEMIA
     Route: 048
     Dates: start: 20050110, end: 20070101

REACTIONS (2)
  - BRADYPHRENIA [None]
  - SLEEP DISORDER [None]
